FAERS Safety Report 19945989 (Version 1)
Quarter: 2021Q4

REPORT INFORMATION
  Report Type: Spontaneous
  Country: US (occurrence: US)
  Receive Date: 20211012
  Receipt Date: 20211012
  Transmission Date: 20220303
  Serious: Yes (Other)
  Sender: FDA-Public Use
  Company Number: US-BAYER-2021A225789

PATIENT
  Age: 68 Year
  Sex: Male

DRUGS (3)
  1. TINACTIN [Suspect]
     Active Substance: TOLNAFTATE
     Indication: Therapeutic skin care topical
     Dosage: UNK UNK, BID
     Route: 061
     Dates: start: 2001, end: 20210510
  2. HYDROCHLOROTHIAZIDE [Concomitant]
     Active Substance: HYDROCHLOROTHIAZIDE
  3. ALFUZOSIN [Concomitant]
     Active Substance: ALFUZOSIN

REACTIONS (1)
  - Prostate cancer [Not Recovered/Not Resolved]

NARRATIVE: CASE EVENT DATE: 20190101
